FAERS Safety Report 19316516 (Version 1)
Quarter: 2021Q2

REPORT INFORMATION
  Report Type: Report from Study
  Country: US (occurrence: US)
  Receive Date: 20210527
  Receipt Date: 20210527
  Transmission Date: 20210717
  Serious: Yes (Other)
  Sender: FDA-Public Use
  Company Number: US-INSMED, INC.-2021-08186-US

PATIENT
  Age: 70 Year
  Sex: Male

DRUGS (2)
  1. ARIKAYCE [Suspect]
     Active Substance: AMIKACIN
     Indication: PRODUCT USED FOR UNKNOWN INDICATION
     Dosage: 590 MILLIGRAM, QD
     Route: 055
     Dates: start: 20210402, end: 2021
  2. ARIKAYCE [Suspect]
     Active Substance: AMIKACIN
     Dosage: 590 MILLIGRAM, ONCE A WEEK
     Route: 055
     Dates: start: 2021

REACTIONS (11)
  - Sputum increased [Recovering/Resolving]
  - Productive cough [Not Recovered/Not Resolved]
  - Oxygen saturation decreased [Unknown]
  - Intentional dose omission [Unknown]
  - Dyspnoea [Not Recovered/Not Resolved]
  - Increased viscosity of bronchial secretion [Not Recovered/Not Resolved]
  - Sputum discoloured [Recovering/Resolving]
  - Diarrhoea [Unknown]
  - Throat tightness [Unknown]
  - Dizziness [Recovering/Resolving]
  - Unevaluable event [Unknown]

NARRATIVE: CASE EVENT DATE: 2021
